FAERS Safety Report 9849512 (Version 2)
Quarter: 2014Q2

REPORT INFORMATION
  Report Type: Spontaneous
  Country: FR (occurrence: FR)
  Receive Date: 20140128
  Receipt Date: 20140408
  Transmission Date: 20141212
  Serious: Yes (Other)
  Sender: FDA-Public Use
  Company Number: FR-AMGEN-FRASP2014004799

PATIENT
  Age: 89 Year
  Sex: Female
  Weight: 52.7 kg

DRUGS (6)
  1. ARANESP [Suspect]
     Indication: PRODUCT USED FOR UNKNOWN INDICATION
     Dosage: 20 MUG, QWK
     Route: 058
     Dates: start: 20131231, end: 20140110
  2. KARDEGIC [Concomitant]
     Dosage: UNK
     Route: 065
     Dates: start: 20131213
  3. TAHOR [Concomitant]
     Dosage: 10 MG, QD
     Route: 065
     Dates: start: 20131213
  4. KAYEXALATE [Concomitant]
     Dosage: UNK
     Route: 065
     Dates: start: 20140106
  5. UVEDOSE [Concomitant]
     Dosage: UNK
     Route: 065
     Dates: start: 20131231
  6. BISOPROLOL FUMARATE [Concomitant]
     Dosage: UNK
     Route: 065
     Dates: start: 20131213

REACTIONS (1)
  - Urticaria [Recovered/Resolved]
